FAERS Safety Report 6535464-0 (Version None)
Quarter: 2009Q4

REPORT INFORMATION
  Report Type: 
  Country: None (occurrence: None)
  Receive Date: 20091228
  Receipt Date: 20090528
  Transmission Date: 20100525
  Serious: Yes (Hospitalization)
  Sender: FDA-Public Use
  Company Number: US-002962

PATIENT
  Age: 65 Year
  Sex: Female

DRUGS (2)
  1. MULTIHANCE [Suspect]
     Indication: MULTIPLE SCLEROSIS
     Dosage: 20ML ONCE INTRAVENOUS
     Route: 042
     Dates: start: 20090528, end: 20090528
  2. MULTIHANCE [Suspect]
     Indication: NUCLEAR MAGNETIC RESONANCE IMAGING BRAIN
     Dosage: 20ML ONCE INTRAVENOUS
     Route: 042
     Dates: start: 20090528, end: 20090528

REACTIONS (1)
  - ANAPHYLACTIC SHOCK [None]
